FAERS Safety Report 8621644-7 (Version None)
Quarter: 2012Q3

REPORT INFORMATION
  Report Type: 
  Country: None (occurrence: None)
  Receive Date: 20120820
  Receipt Date: 20120820
  Transmission Date: 20120928
  Serious: Yes (Hospitalization)
  Sender: FDA-Public Use
  Company Number: None

PATIENT
  Age: 66 Year
  Sex: Female
  Weight: 67.586 kg

DRUGS (4)
  1. NORCO [Concomitant]
  2. GABAPENTIN [Concomitant]
  3. IBUPROFEN [Concomitant]
  4. SORAFENIB [Suspect]
     Indication: OVARIAN CANCER
     Dosage: 200MG BID P.O.
     Route: 048
     Dates: start: 20120809

REACTIONS (4)
  - METASTASES TO LIVER [None]
  - URINARY RETENTION [None]
  - METASTASES TO LUNG [None]
  - METASTASIS [None]
